FAERS Safety Report 5911448-8 (Version None)
Quarter: 2008Q4

REPORT INFORMATION
  Report Type: 
  Country: None (occurrence: None)
  Receive Date: 20081007
  Receipt Date: 20080924
  Transmission Date: 20090506
  Serious: Yes (Other)
  Sender: FDA-Public Use
  Company Number: GB-GILEAD-2008-0018389

PATIENT
  Age: 48 Year
  Sex: Female

DRUGS (1)
  1. ATRIPLA [Suspect]

REACTIONS (1)
  - FEELING ABNORMAL [None]
